FAERS Safety Report 21769490 (Version 1)
Quarter: 2022Q4

REPORT INFORMATION
  Report Type: Spontaneous
  Country: US (occurrence: US)
  Receive Date: 20221223
  Receipt Date: 20221223
  Transmission Date: 20230113
  Serious: No
  Sender: FDA-Public Use
  Company Number: US-VIIV HEALTHCARE LIMITED-US2022AMR187288

PATIENT
  Age: 56 Year
  Sex: Female

DRUGS (2)
  1. RILPIVIRINE [Suspect]
     Active Substance: RILPIVIRINE
     Indication: HIV infection
     Dosage: UNK UNK, (0 MG/2 ML) Z (400/600 MG ONCE MONTHLY)
     Route: 065
     Dates: start: 20220329
  2. CABOTEGRAVIR [Suspect]
     Active Substance: CABOTEGRAVIR
     Indication: HIV infection
     Dosage: UNK UNK, (0 MG/2 ML) Z (400/600 MG ONCE MONTHLY)
     Route: 065
     Dates: start: 20220329

REACTIONS (1)
  - Product dose omission issue [Not Recovered/Not Resolved]
